FAERS Safety Report 8765630 (Version 3)
Quarter: 2012Q4

REPORT INFORMATION
  Report Type: 
  Country: US (occurrence: US)
  Receive Date: 20120903
  Receipt Date: 20121003
  Transmission Date: 20130627
  Serious: Yes (Other)
  Sender: FDA-Public Use
  Company Number: PHEH2012US016475

PATIENT
  Age: 68 Year
  Sex: Female
  Weight: 56.24 kg

DRUGS (11)
  1. GLEEVEC [Suspect]
     Indication: GASTROINTESTINAL STROMAL TUMOUR
     Dosage: 400 mg, Daily
     Route: 048
     Dates: start: 200906, end: 201006
  2. GLEEVEC [Suspect]
     Dosage: 400 mg, Daily
     Route: 048
  3. GLEEVEC [Suspect]
     Dosage: 400 mg, UNK
     Route: 048
     Dates: start: 20110701
  4. LANOXIN [Concomitant]
  5. LISINOPRIL [Concomitant]
  6. SYNTHROID [Concomitant]
  7. ASPIRIN [Concomitant]
  8. POTASSIUM [Concomitant]
  9. COLCHICINE [Concomitant]
  10. FISH OIL [Concomitant]
  11. MULTIVITAMINS [Concomitant]

REACTIONS (9)
  - Intervertebral disc disorder [Unknown]
  - Sciatica [Unknown]
  - Pain [Unknown]
  - Chronic myeloid leukaemia [Not Recovered/Not Resolved]
  - Malignant neoplasm progression [Not Recovered/Not Resolved]
  - Gastrointestinal stromal tumour [Unknown]
  - Neoplasm recurrence [Unknown]
  - Abdominal tenderness [Recovering/Resolving]
  - Blood creatinine increased [Unknown]
